FAERS Safety Report 13210210 (Version 1)
Quarter: 2017Q1

REPORT INFORMATION
  Report Type: Spontaneous
  Country: US (occurrence: US)
  Receive Date: 20170209
  Receipt Date: 20170209
  Transmission Date: 20170428
  Serious: No
  Sender: FDA-Public Use
  Company Number: None

PATIENT
  Sex: Male

DRUGS (1)
  1. ENBREL [Suspect]
     Active Substance: ETANERCEPT
     Indication: RHEUMATOID ARTHRITIS
     Dosage: 50 MG ONCE WEEKLY
     Route: 058
     Dates: start: 20161108, end: 20170205

REACTIONS (4)
  - Therapy cessation [None]
  - Drug ineffective [None]
  - Lower respiratory tract congestion [None]
  - Oropharyngeal pain [None]
